FAERS Safety Report 9981415 (Version 1)
Quarter: 2014Q1

REPORT INFORMATION
  Report Type: Spontaneous
  Country: IT (occurrence: IT)
  Receive Date: 20140307
  Receipt Date: 20140307
  Transmission Date: 20141002
  Serious: Yes (Other)
  Sender: FDA-Public Use
  Company Number: IT-UCBSA-114146

PATIENT
  Age: 63 Year
  Sex: Female

DRUGS (2)
  1. LEVETIRACETAM [Suspect]
     Indication: STATUS EPILEPTICUS
  2. TOPIRAMATE [Concomitant]
     Indication: STATUS EPILEPTICUS

REACTIONS (1)
  - Status epilepticus [Recovered/Resolved]
